FAERS Safety Report 18192343 (Version 1)
Quarter: 2020Q3

REPORT INFORMATION
  Report Type: Spontaneous
  Country: US (occurrence: US)
  Receive Date: 20200825
  Receipt Date: 20200825
  Transmission Date: 20201103
  Serious: Yes (Other)
  Sender: FDA-Public Use
  Company Number: None

PATIENT
  Age: 62 Year
  Sex: Female
  Weight: 90 kg

DRUGS (10)
  1. ZINC. [Concomitant]
     Active Substance: ZINC
  2. ZOCOR [Suspect]
     Active Substance: SIMVASTATIN
  3. EDARBYCLOR [Concomitant]
     Active Substance: AZILSARTAN KAMEDOXOMIL\CHLORTHALIDONE
  4. MAGNESIUM [Concomitant]
     Active Substance: MAGNESIUM
  5. LEVOTHYROXINE. [Concomitant]
     Active Substance: LEVOTHYROXINE
  6. VITAMIN [Concomitant]
     Active Substance: VITAMINS
  7. COENZYME Q10 [Concomitant]
     Active Substance: DIETARY SUPPLEMENT\UBIDECARENONE
  8. ATORVASTATIN 20 MG [Suspect]
     Active Substance: ATORVASTATIN
     Dosage: ?          QUANTITY:1 TABLET(S);?
     Route: 048
     Dates: start: 20200723, end: 20200819
  9. FISH OIL [Concomitant]
     Active Substance: FISH OIL
  10. VITAMIN D [Concomitant]
     Active Substance: VITAMIN D NOS

REACTIONS (3)
  - Muscle rupture [None]
  - Rotator cuff syndrome [None]
  - Tendon rupture [None]

NARRATIVE: CASE EVENT DATE: 20200818
